FAERS Safety Report 6247428-5 (Version None)
Quarter: 2009Q2

REPORT INFORMATION
  Report Type: 
  Country: None (occurrence: None)
  Receive Date: 20090626
  Receipt Date: 20090624
  Transmission Date: 20091009
  Serious: Yes (Hospitalization)
  Sender: FDA-Public Use
  Company Number: GB-EISAI INC.-E2090-00767-SPO-GB

PATIENT
  Age: 53 Year
  Sex: Male

DRUGS (8)
  1. ZONEGRAN [Suspect]
     Indication: EPILEPSY
     Route: 048
  2. KEPPRA [Concomitant]
     Indication: EPILEPSY
     Route: 048
  3. EPILIM [Concomitant]
     Indication: EPILEPSY
     Dosage: 400MG AM/600MG PM
     Route: 048
  4. CLONAZEPAM [Concomitant]
     Indication: EPILEPSY
     Route: 048
  5. CLONAZEPAM [Concomitant]
  6. DIAZEPAM [Concomitant]
     Indication: EPILEPSY
     Route: 048
  7. PAROXETINE HCL [Concomitant]
     Indication: DEPRESSION
     Route: 048
  8. FENTANYL-100 [Concomitant]
     Dosage: UNKNOWN
     Route: 062

REACTIONS (3)
  - CONVULSION [None]
  - LIVER FUNCTION TEST ABNORMAL [None]
  - SKIN INFECTION [None]
